FAERS Safety Report 4382547-X (Version None)
Quarter: 2004Q2

REPORT INFORMATION
  Report Type: 
  Country: None (occurrence: None)
  Receive Date: 20040609
  Receipt Date: 20040519
  Transmission Date: 20050107
  Serious: Yes (Death)
  Sender: FDA-Public Use
  Company Number: 601270

PATIENT
  Age: 61 Year
  Sex: Male

DRUGS (2)
  1. GAMMAGARD S/D [Suspect]
     Indication: PEMPHIGUS
     Dates: start: 20030901
  2. GAMIMUNE [Suspect]
     Indication: PEMPHIGUS
     Dates: start: 20030901

REACTIONS (3)
  - CEREBROVASCULAR ACCIDENT [None]
  - COMPLETED SUICIDE [None]
  - MYOCARDIAL INFARCTION [None]
